FAERS Safety Report 7825300-4 (Version None)
Quarter: 2011Q4

REPORT INFORMATION
  Report Type: 
  Country: None (occurrence: None)
  Receive Date: 20111019
  Receipt Date: 20111011
  Transmission Date: 20120403
  Serious: Yes (Hospitalization)
  Sender: FDA-Public Use
  Company Number: JP-GLAXOSMITHKLINE-B0713715A

PATIENT
  Sex: Female
  Weight: 63 kg

DRUGS (20)
  1. ALDACTONE [Concomitant]
     Indication: PLEURAL EFFUSION
     Route: 048
     Dates: start: 20091116, end: 20100113
  2. ALDACTONE [Concomitant]
     Route: 048
     Dates: start: 20100126, end: 20100224
  3. DECADRON [Concomitant]
     Route: 048
     Dates: start: 20100118, end: 20100221
  4. LEVOFLOXACIN [Concomitant]
     Indication: SKIN INFECTION
     Route: 048
     Dates: start: 20100106, end: 20100114
  5. CLOBETASOL PROPIONATE [Concomitant]
     Indication: ECZEMA ASTEATOTIC
     Route: 061
     Dates: start: 20100115, end: 20100118
  6. DECADRON [Concomitant]
     Indication: DYSPNOEA
     Route: 048
     Dates: start: 20091116, end: 20100110
  7. OXINORM [Concomitant]
     Indication: CANCER PAIN
     Route: 048
     Dates: start: 20100220, end: 20100221
  8. MUCOSTA [Concomitant]
     Indication: CANCER PAIN
     Route: 048
     Dates: start: 20100124, end: 20100130
  9. XELODA [Concomitant]
     Dosage: 2400MG PER DAY
     Route: 048
     Dates: start: 20071229, end: 20100114
  10. FUROSEMIDE [Concomitant]
     Route: 042
     Dates: start: 20091116, end: 20100114
  11. TYKERB [Suspect]
     Indication: BREAST CANCER
     Dosage: 1250MG PER DAY
     Route: 048
     Dates: start: 20091116, end: 20100114
  12. FUROSEMIDE [Concomitant]
     Indication: PLEURAL EFFUSION
     Route: 048
     Dates: start: 20091116, end: 20100113
  13. OXYCONTIN [Concomitant]
     Indication: CANCER PAIN
     Route: 048
     Dates: start: 20100218, end: 20100221
  14. GENTAMICIN SULFATE [Concomitant]
     Indication: SKIN INFECTION
     Route: 061
     Dates: start: 20091116, end: 20100114
  15. THERADIA [Concomitant]
     Indication: ECZEMA ASTEATOTIC
     Route: 061
     Dates: start: 20100118, end: 20100201
  16. ALPROSTADIL [Concomitant]
     Indication: SKIN INFECTION
     Route: 061
     Dates: start: 20091214, end: 20091227
  17. MUCOSOLVAN [Concomitant]
     Indication: BRONCHITIS CHRONIC
     Route: 048
     Dates: start: 20091116, end: 20100119
  18. PETROLATUM [Concomitant]
     Indication: ECZEMA ASTEATOTIC
     Route: 061
     Dates: start: 20100202, end: 20100202
  19. FUROSEMIDE [Concomitant]
     Route: 048
     Dates: start: 20100126, end: 20100224
  20. FENTANYL [Concomitant]
     Indication: CANCER PAIN
     Route: 048
     Dates: start: 20100221, end: 20100221

REACTIONS (1)
  - PLEURAL EFFUSION [None]
